FAERS Safety Report 5747265-1 (Version None)
Quarter: 2008Q2

REPORT INFORMATION
  Report Type: 
  Country: None (occurrence: None)
  Receive Date: 20080520
  Receipt Date: 20080505
  Transmission Date: 20081010
  Serious: Yes (Hospitalization, Other)
  Sender: FDA-Public Use
  Company Number: 100#08#2008-02627

PATIENT
  Age: 29 Year
  Sex: Female

DRUGS (4)
  1. METHYLPREDNISOLONE [Suspect]
     Indication: LUPUS NEPHRITIS
  2. CEFTRIAXONE [Concomitant]
  3. ACYCLOVIR [Concomitant]
  4. METHOTREXATE [Concomitant]

REACTIONS (3)
  - BLINDNESS CORTICAL [None]
  - HEMIANOPIA HOMONYMOUS [None]
  - REVERSIBLE POSTERIOR LEUKOENCEPHALOPATHY SYNDROME [None]
